FAERS Safety Report 5707876-6 (Version None)
Quarter: 2008Q2

REPORT INFORMATION
  Report Type: 
  Country: None (occurrence: None)
  Receive Date: 20080417
  Receipt Date: 20080417
  Transmission Date: 20081010
  Serious: Yes (Hospitalization)
  Sender: FDA-Public Use
  Company Number: None

PATIENT
  Sex: Female
  Weight: 50 kg

DRUGS (3)
  1. HEPARIN [Suspect]
     Indication: CENTRAL VENOUS CATHETERISATION
     Dosage: 3 ML BID IV
     Route: 042
     Dates: start: 20080317, end: 20080327
  2. CEFTRIAXONE [Concomitant]
  3. IVS FLUSH [Concomitant]

REACTIONS (1)
  - DEEP VEIN THROMBOSIS [None]
